FAERS Safety Report 5060584-X (Version None)
Quarter: 2006Q3

REPORT INFORMATION
  Report Type: 
  Country: None (occurrence: None)
  Receive Date: 20060721
  Receipt Date: 20060721
  Transmission Date: 20061208
  Serious: Yes (Disabling)
  Sender: FDA-Public Use
  Company Number: None

PATIENT
  Sex: Female
  Weight: 68.0396 kg

DRUGS (4)
  1. BONIVA [Suspect]
     Indication: OSTEOPOROSIS PROPHYLAXIS
     Dosage: 1 PILL MONTHLY BY MOUTH
     Route: 048
     Dates: start: 20060116
  2. BONIVA [Suspect]
     Indication: OSTEOPOROSIS PROPHYLAXIS
     Dosage: 1 PILL MONTHLY BY MOUTH
     Route: 048
     Dates: start: 20060217
  3. BONIVA [Suspect]
     Indication: OSTEOPOROSIS PROPHYLAXIS
     Dosage: 1 PILL MONTHLY BY MOUTH
     Route: 048
     Dates: start: 20060316
  4. BONIVA [Suspect]
     Indication: OSTEOPOROSIS PROPHYLAXIS
     Dosage: 1 PILL MONTHLY BY MOUTH
     Route: 048
     Dates: start: 20060416

REACTIONS (6)
  - ARTHRALGIA [None]
  - BACK PAIN [None]
  - DYSSTASIA [None]
  - GAIT DISTURBANCE [None]
  - LIP DISORDER [None]
  - MYALGIA [None]
